FAERS Safety Report 7676116-3 (Version None)
Quarter: 2011Q3

REPORT INFORMATION
  Report Type: 
  Country: None (occurrence: None)
  Receive Date: 20110805
  Receipt Date: 20110725
  Transmission Date: 20111222
  Serious: Yes (Death, Hospitalization, Other)
  Sender: FDA-Public Use
  Company Number: MPS1-1000544

PATIENT
  Age: 23 Month
  Sex: Male
  Weight: 14.2 kg

DRUGS (18)
  1. MEROPENEM [Concomitant]
  2. VORICONAZOLE [Concomitant]
  3. METHYLPREDNISOLONE [Concomitant]
  4. METRONIDAZOLE (METRONIDAZOLE SODIUM) [Concomitant]
  5. VANCOMYCIN [Concomitant]
  6. ALDURAZYME [Suspect]
     Indication: MUCOPOLYSACCHARIDOSIS I
     Dosage: 0.58 MG/ KG,QW, INTRAVENOUS
     Route: 042
     Dates: start: 20100525, end: 20110715
  7. CASPOFUNGIN (CASPOFUNGIN ACETATE) [Concomitant]
  8. FOSCARNET [Concomitant]
  9. METHADONE HCL [Concomitant]
  10. LACRI-LUBE (MINERAL OIL LIGHT, PETROLATUM, WOOL FAT) [Concomitant]
  11. CITRULLINE (CITRULLINE) [Concomitant]
  12. PROTONONIX (PANTOPRAZOLE SODIUM) [Concomitant]
  13. MULTIVITAMIN [Concomitant]
  14. TOBRAMYCIN [Concomitant]
  15. ACETAZOLAMIDE [Concomitant]
  16. NEUPOGEN [Concomitant]
  17. POTASSIUM CHLORIDE [Concomitant]
  18. DAPSONE [Concomitant]

REACTIONS (10)
  - RESPIRATORY FAILURE [None]
  - CYTOMEGALOVIRUS INFECTION [None]
  - PANCYTOPENIA [None]
  - ASPIRATION [None]
  - CYTOMEGALOVIRUS HEPATITIS [None]
  - TACHYPNOEA [None]
  - BONE MARROW TRANSPLANT [None]
  - PNEUMOTHORAX [None]
  - HEART RATE DECREASED [None]
  - SURGICAL PROCEDURE REPEATED [None]
